FAERS Safety Report 13177527 (Version 5)
Quarter: 2017Q2

REPORT INFORMATION
  Report Type: Report from Study
  Country: None (occurrence: BE)
  Receive Date: 20170201
  Receipt Date: 20170520
  Transmission Date: 20170830
  Serious: Yes (Hospitalization)
  Sender: FDA-Public Use
  Company Number: BE-ABBVIE-16P-013-1662872-00

PATIENT
  Age: 76 Year
  Sex: Male

DRUGS (17)
  1. DUODOPA [Suspect]
     Active Substance: CARBIDOPA\LEVODOPA
     Dosage: DOSES CONTINUOUSLY MONITORED AND ADAPTED
     Route: 050
     Dates: start: 20140123, end: 20160406
  2. DUODOPA [Suspect]
     Active Substance: CARBIDOPA\LEVODOPA
     Dosage: AM=7ML, CD=3ML/HR DURING 16HRS, ED=2ML
     Route: 050
     Dates: start: 20170414, end: 20170425
  3. DUODOPA [Suspect]
     Active Substance: CARBIDOPA\LEVODOPA
     Indication: PARKINSON^S DISEASE
     Dosage: AM=4ML, CD=2.5ML/HR DURING 16HRS, ED=1.5ML
     Route: 050
     Dates: start: 20120423, end: 20140123
  4. DUODOPA [Suspect]
     Active Substance: CARBIDOPA\LEVODOPA
     Dosage: AM=6.5ML, CD=2.9ML/HR DURING 16HRS, ED=1.5ML
     Route: 050
     Dates: start: 20160406, end: 20160622
  5. DUODOPA [Suspect]
     Active Substance: CARBIDOPA\LEVODOPA
     Dosage: AM: 7 ML?CD: 2.8 ML/HR DURING 16 HRS?ED: 2.0 ML
     Route: 050
     Dates: start: 20170425
  6. DIPYRIDAMOL [Concomitant]
     Active Substance: DIPYRIDAMOLE
     Indication: PRODUCT USED FOR UNKNOWN INDICATION
  7. PROLOPA HBS [Concomitant]
     Active Substance: BENSERAZIDE\LEVODOPA
     Indication: PRODUCT USED FOR UNKNOWN INDICATION
     Dosage: BEFORE BEDTIME
     Route: 065
  8. DUODOPA [Suspect]
     Active Substance: CARBIDOPA\LEVODOPA
     Dosage: AM=7ML, CD=2.7ML/HR DURING 16HRS, ED=1.7ML
     Route: 050
     Dates: start: 20170126, end: 20170414
  9. NESTROLAN [Concomitant]
     Indication: PRODUCT USED FOR UNKNOWN INDICATION
  10. ASAFLOW [Concomitant]
     Active Substance: ASPIRIN
     Indication: PRODUCT USED FOR UNKNOWN INDICATION
  11. DUODOPA [Suspect]
     Active Substance: CARBIDOPA\LEVODOPA
     Dosage: AM=7ML, CD=2.7ML/HR DURING 16HRS, ED=1.5ML
     Route: 050
     Dates: start: 20160622, end: 20170126
  12. PROLOPA 250 [Concomitant]
     Indication: PRODUCT USED FOR UNKNOWN INDICATION
     Dosage: FORM STRENGTH: 200MG/50MG??UNIT DOSE : 0.5 TABLET
  13. TOVIAZ [Concomitant]
     Active Substance: FESOTERODINE FUMARATE
     Indication: PRODUCT USED FOR UNKNOWN INDICATION
  14. GLUCOVANCE [Concomitant]
     Active Substance: GLYBURIDE\METFORMIN HYDROCHLORIDE
     Indication: PRODUCT USED FOR UNKNOWN INDICATION
     Dosage: FORM STRENGTH : 500/2.5
  15. SIMVASTATINE EG [Concomitant]
     Indication: PRODUCT USED FOR UNKNOWN INDICATION
  16. PROLOPA 250 [Concomitant]
     Dosage: FORM STRENGTH: 200MG/50MGUNIT DOSE : 0.5 TABLET, EMERGENCY MEDICATION
  17. GLUCOPHAGE [Concomitant]
     Active Substance: METFORMIN HYDROCHLORIDE
     Indication: PRODUCT USED FOR UNKNOWN INDICATION

REACTIONS (11)
  - Drug effect incomplete [Not Recovered/Not Resolved]
  - Freezing phenomenon [Not Recovered/Not Resolved]
  - Fall [Not Recovered/Not Resolved]
  - Stoma site extravasation [Not Recovered/Not Resolved]
  - Pain [Not Recovered/Not Resolved]
  - Freezing phenomenon [Unknown]
  - Stoma site irritation [Unknown]
  - Gastric ulcer [Unknown]
  - Musculoskeletal stiffness [Not Recovered/Not Resolved]
  - Dyskinesia [Not Recovered/Not Resolved]
  - Stoma site haemorrhage [Unknown]

NARRATIVE: CASE EVENT DATE: 20170126
